FAERS Safety Report 9500043 (Version 1)
Quarter: 2013Q3

REPORT INFORMATION
  Report Type: Spontaneous
  Country: TN (occurrence: TN)
  Receive Date: 20130905
  Receipt Date: 20130905
  Transmission Date: 20140515
  Serious: Yes (Other)
  Sender: FDA-Public Use
  Company Number: TN-ACCORD-019253

PATIENT
  Age: 57 Year
  Sex: Male

DRUGS (1)
  1. ETOPOSIDE [Suspect]
     Indication: PANCREATIC CARCINOMA METASTATIC

REACTIONS (2)
  - Atrial fibrillation [Unknown]
  - Off label use [Unknown]
